FAERS Safety Report 5839568-7 (Version None)
Quarter: 2008Q3

REPORT INFORMATION
  Report Type: 
  Country: None (occurrence: None)
  Receive Date: 20080811
  Receipt Date: 20080604
  Transmission Date: 20090109
  Serious: No
  Sender: FDA-Public Use
  Company Number: A0731157A

PATIENT

DRUGS (1)
  1. TREXIMET [Suspect]
     Route: 048

REACTIONS (3)
  - NAUSEA [None]
  - TREMOR [None]
  - VOMITING [None]
